FAERS Safety Report 19491251 (Version 2)
Quarter: 2021Q3

REPORT INFORMATION
  Report Type: Spontaneous
  Country: US (occurrence: US)
  Receive Date: 20210705
  Receipt Date: 20210728
  Transmission Date: 20211014
  Serious: Yes (Other)
  Sender: FDA-Public Use
  Company Number: US-HIKMA PHARMACEUTICALS USA INC.-US-H14001-21-03069

PATIENT
  Age: 70 Year
  Sex: Female

DRUGS (17)
  1. DEXAMETHASONE. [Suspect]
     Active Substance: DEXAMETHASONE
     Dosage: THE DAY BEFORE CHEMOTHERAPY
     Route: 065
  2. TAXOTERE [Suspect]
     Active Substance: DOCETAXEL
     Dosage: THE DOSE WAS REDUCED TO 75% FOR CYCLE THREE
     Route: 065
     Dates: start: 20210512
  3. TAXOTERE [Suspect]
     Active Substance: DOCETAXEL
     Dosage: THE DOSE WAS REDUCED TO 50% FOR CYCLE FOUR
     Route: 065
     Dates: start: 20210602
  4. ZORZIO [Concomitant]
     Indication: PRODUCT USED FOR UNKNOWN INDICATION
     Route: 065
     Dates: start: 20210608
  5. UDENYCA [Concomitant]
     Active Substance: PEGFILGRASTIM-CBQV
     Indication: PRODUCT USED FOR UNKNOWN INDICATION
     Dosage: UNKNOWN
     Route: 065
  6. DEXAMETHASONE. [Suspect]
     Active Substance: DEXAMETHASONE
     Indication: CHEMOTHERAPY SIDE EFFECT PROPHYLAXIS
     Dosage: 8 MG MORE THAN NEEDED
     Route: 065
  7. DEXAMETHASONE. [Suspect]
     Active Substance: DEXAMETHASONE
     Dosage: PRIOR TO INFUSION THE DAY OF CHEMOTHERAPY
     Route: 065
  8. TAXOTERE [Suspect]
     Active Substance: DOCETAXEL
     Indication: BREAST CANCER FEMALE
     Dosage: FIRST CYCLE OF TAXOTERE WAS 100% STRENGTH
     Route: 065
     Dates: start: 202104
  9. CYTOXAN [Suspect]
     Active Substance: CYCLOPHOSPHAMIDE
     Dosage: THE DOSE WAS REDUCED TO 75% FOR CYCLE TWO
     Route: 065
     Dates: start: 20210421
  10. NEULASTA [Concomitant]
     Active Substance: PEGFILGRASTIM
     Indication: PRODUCT USED FOR UNKNOWN INDICATION
     Dosage: UNKNOWN
     Route: 065
  11. DEXAMETHASONE. [Suspect]
     Active Substance: DEXAMETHASONE
     Dosage: THE DAY AFTER CHEMOTHERAPY
     Route: 065
  12. DECADRON [Concomitant]
     Active Substance: DEXAMETHASONE
     Indication: PRODUCT USED FOR UNKNOWN INDICATION
     Dosage: UNKNOWN
     Route: 065
  13. CYTOXAN [Suspect]
     Active Substance: CYCLOPHOSPHAMIDE
     Dosage: THE DOSE WAS REDUCED TO 75% FOR CYCLE THREE
     Route: 065
     Dates: start: 20210512
  14. TAXOTERE [Suspect]
     Active Substance: DOCETAXEL
     Dosage: THE DOSE WAS REDUCED TO 75% FOR CYCLE TWO
     Route: 065
     Dates: start: 20210421
  15. CYTOXAN [Suspect]
     Active Substance: CYCLOPHOSPHAMIDE
     Indication: BREAST CANCER FEMALE
     Dosage: FIRST CYCLE OF CYTOXAN WAS 100% STRENGTH
     Route: 065
     Dates: start: 202104
  16. CYTOXAN [Suspect]
     Active Substance: CYCLOPHOSPHAMIDE
     Dosage: THE DOSE WAS REDUCED TO 50% FOR CYCLE FOUR
     Route: 065
     Dates: start: 20210602
  17. TRAMADOL. [Concomitant]
     Active Substance: TRAMADOL
     Indication: BONE PAIN
     Dosage: UNKNOWN
     Route: 065

REACTIONS (3)
  - Ulcer [Recovered/Resolved]
  - Arrhythmia [Recovered/Resolved]
  - Overdose [Recovered/Resolved]

NARRATIVE: CASE EVENT DATE: 202104
